FAERS Safety Report 13943026 (Version 1)
Quarter: 2017Q3

REPORT INFORMATION
  Report Type: Spontaneous
  Country: GB (occurrence: GB)
  Receive Date: 20170906
  Receipt Date: 20170906
  Transmission Date: 20171128
  Serious: Yes (Death)
  Sender: FDA-Public Use
  Company Number: GB-MYLANLABS-2017M1053630

PATIENT
  Age: 49 Year
  Sex: Female

DRUGS (4)
  1. METFORMIN [Concomitant]
     Active Substance: METFORMIN HYDROCHLORIDE
     Dosage: 500 MG, PM
     Route: 048
  2. PERICYAZINE [Concomitant]
     Active Substance: PERICIAZINE
     Indication: SCHIZOPHRENIA
     Dosage: 50 MG, AM
     Route: 048
  3. CLOZARIL [Suspect]
     Active Substance: CLOZAPINE
     Indication: SCHIZOPHRENIA
     Dosage: UNK
     Route: 048
     Dates: start: 20170523
  4. METFORMIN [Concomitant]
     Active Substance: METFORMIN HYDROCHLORIDE
     Indication: DIABETES MELLITUS
     Dosage: 1 G, AM
     Route: 048

REACTIONS (4)
  - Multiple organ dysfunction syndrome [Fatal]
  - Cardiac arrest [Fatal]
  - Diabetes mellitus [Fatal]
  - Myocardial ischaemia [Fatal]

NARRATIVE: CASE EVENT DATE: 2017
